FAERS Safety Report 13889213 (Version 1)
Quarter: 2017Q3

REPORT INFORMATION
  Report Type: Spontaneous
  Country: US (occurrence: US)
  Receive Date: 20170821
  Receipt Date: 20170821
  Transmission Date: 20171127
  Serious: Yes (Other)
  Sender: FDA-Public Use
  Company Number: None

PATIENT
  Age: 49 Year
  Sex: Male
  Weight: 112.95 kg

DRUGS (1)
  1. BUPRENORPHINE-NALOXONE [Suspect]
     Active Substance: BUPRENORPHINE HYDROCHLORIDE\NALOXONE HYDROCHLORIDE
     Indication: DRUG DEPENDENCE
     Dates: start: 20170807, end: 20170821

REACTIONS (4)
  - Product solubility abnormal [None]
  - Product substitution issue [None]
  - Drug effect delayed [None]
  - Drug dependence [None]

NARRATIVE: CASE EVENT DATE: 20170815
